FAERS Safety Report 5151781-3 (Version None)
Quarter: 2006Q4

REPORT INFORMATION
  Report Type: 
  Country: None (occurrence: None)
  Receive Date: 20061107
  Receipt Date: 20061023
  Transmission Date: 20070319
  Serious: Yes (Death)
  Sender: FDA-Public Use
  Company Number: B0443399A

PATIENT
  Age: 20 Year

DRUGS (4)
  1. COMPAZINE [Suspect]
     Dosage: UNK / UNK/ UNKNOWN
  2. PROMETHAZINE [Suspect]
     Dosage: UNK / UNK/ ORAL
     Route: 048
  3. DICYCLOMINE HYDROCHLORIDE [Suspect]
     Dosage: UNK/ UNK/ UNKNOWN
  4. UNKNOWN (FORMULATION UNKNOWN) (UNKNOWN) [Suspect]
     Dosage: UNK

REACTIONS (2)
  - CARDIO-RESPIRATORY ARREST [None]
  - COMPLETED SUICIDE [None]
